FAERS Safety Report 14652494 (Version 1)
Quarter: 2018Q1

REPORT INFORMATION
  Report Type: Spontaneous
  Country: GB (occurrence: GB)
  Receive Date: 20180319
  Receipt Date: 20180319
  Transmission Date: 20180509
  Serious: Yes (Life-Threatening)
  Sender: FDA-Public Use
  Company Number: GB-MICRO LABS LIMITED-BB2018-00129

PATIENT
  Age: 77 Year
  Sex: Male
  Weight: 120 kg

DRUGS (1)
  1. AMOXICILLIN/CLAVULANIC ACID [Suspect]
     Active Substance: AMOXICILLIN\CLAVULANIC ACID
     Indication: SEPSIS
     Route: 065

REACTIONS (9)
  - Circulatory collapse [Unknown]
  - Pulseless electrical activity [Unknown]
  - Malaise [Unknown]
  - Hyponatraemia [Unknown]
  - Hypotension [Unknown]
  - Acidosis [Unknown]
  - Diarrhoea [Unknown]
  - Acute kidney injury [Unknown]
  - Cardiac arrest [Unknown]
